FAERS Safety Report 7552476-9 (Version None)
Quarter: 2011Q2

REPORT INFORMATION
  Report Type: 
  Country: None (occurrence: None)
  Receive Date: 20110616
  Receipt Date: 20110607
  Transmission Date: 20111010
  Serious: Yes (Hospitalization, Other)
  Sender: FDA-Public Use
  Company Number: US-ASTRAZENECA-2011SE35003

PATIENT
  Age: 59 Year
  Sex: Male

DRUGS (3)
  1. SYMBICORT [Concomitant]
  2. PULMICORT FLEXHALER [Suspect]
     Route: 055
  3. NEXIUM [Suspect]
     Route: 048

REACTIONS (6)
  - MALAISE [None]
  - DRUG INEFFECTIVE [None]
  - PNEUMONIA NECROTISING [None]
  - HERNIA [None]
  - HAEMORRHAGE [None]
  - COUGH [None]
